FAERS Safety Report 8801851 (Version 1)
Quarter: 2012Q4

REPORT INFORMATION
  Report Type: 
  Country: US (occurrence: US)
  Receive Date: 20120921
  Receipt Date: 20120921
  Transmission Date: 20130627
  Serious: No
  Sender: FDA-Public Use
  Company Number: US-PFIZER INC-2012233817

PATIENT
  Age: 26 Year
  Sex: Male

DRUGS (4)
  1. LYRICA [Suspect]
     Indication: NECK PAIN
     Dosage: 75 mg, 2x/day
     Route: 048
     Dates: start: 2012
  2. LYRICA [Suspect]
     Indication: SPINAL PAIN
  3. LYRICA [Suspect]
     Indication: MUSCULOSKELETAL PAIN
  4. CYMBALTA [Suspect]
     Dosage: 60 mg, UNK
     Dates: end: 2012

REACTIONS (5)
  - Drug effect decreased [Unknown]
  - Dyspnoea [Recovered/Resolved]
  - Hypertension [Recovered/Resolved]
  - Inappropriate schedule of drug administration [Unknown]
  - Feeling abnormal [Unknown]
